FAERS Safety Report 6832497-1 (Version None)
Quarter: 2010Q3

REPORT INFORMATION
  Report Type: 
  Country: None (occurrence: None)
  Receive Date: 20100712
  Receipt Date: 20070313
  Transmission Date: 20110219
  Serious: No
  Sender: FDA-Public Use
  Company Number: US-PFIZER INC-2007020646

PATIENT
  Sex: Female

DRUGS (3)
  1. CHANTIX [Suspect]
     Indication: SMOKING CESSATION THERAPY
     Route: 048
     Dates: start: 20070310
  2. HYZAAR [Concomitant]
  3. MOTRIN [Concomitant]

REACTIONS (2)
  - INSOMNIA [None]
  - THINKING ABNORMAL [None]
